FAERS Safety Report 9938738 (Version 1)
Quarter: 2014Q1

REPORT INFORMATION
  Report Type: Spontaneous
  Country: US (occurrence: US)
  Receive Date: 20140303
  Receipt Date: 20140303
  Transmission Date: 20141002
  Serious: No
  Sender: FDA-Public Use
  Company Number: US-PFIZER INC-2014057367

PATIENT
  Age: 55 Year
  Sex: Female

DRUGS (17)
  1. FLAGYL [Suspect]
     Dosage: UNK
  2. GABAPENTIN [Suspect]
     Dosage: UNK
  3. BENZOCAINE [Suspect]
     Dosage: UNK
  4. VENTOLIN HFA [Suspect]
     Dosage: UNK
  5. ROTARIX [Suspect]
     Dosage: UNK
  6. BETAMETHASONE [Suspect]
     Dosage: UNK
  7. TRAMADOL HCL [Suspect]
     Dosage: UNK
  8. VALIUM [Suspect]
     Dosage: UNK
  9. OXYCONTIN [Suspect]
     Dosage: UNK
  10. IODINE [Suspect]
     Dosage: UNK
  11. METFORMIN [Suspect]
     Dosage: UNK
  12. FIORICET [Suspect]
     Dosage: UNK
  13. DECADRON [Suspect]
     Dosage: UNK
  14. SODIUM PHOSPHATE [Suspect]
     Dosage: UNK
  15. TYLENOL [Suspect]
     Dosage: UNK
  16. AVELOX [Suspect]
     Dosage: UNK
  17. BENADRYL [Suspect]
     Dosage: UNK

REACTIONS (1)
  - Drug hypersensitivity [Unknown]
